FAERS Safety Report 6385968-9 (Version None)
Quarter: 2009Q4

REPORT INFORMATION
  Report Type: 
  Country: None (occurrence: None)
  Receive Date: 20091002
  Receipt Date: 20090226
  Transmission Date: 20100525
  Serious: No
  Sender: FDA-Public Use
  Company Number: US-ASTRAZENECA-2009UW05444

PATIENT
  Age: 744 Month
  Sex: Female
  Weight: 83 kg

DRUGS (3)
  1. ARIMIDEX [Suspect]
     Route: 048
     Dates: start: 20080501
  2. LEVOTHYROXINE SODIUM [Concomitant]
  3. BENICAR HCT [Concomitant]

REACTIONS (2)
  - ABDOMINAL DISTENSION [None]
  - ABDOMINAL PAIN [None]
